FAERS Safety Report 14007212 (Version 1)
Quarter: 2017Q3

REPORT INFORMATION
  Report Type: Spontaneous
  Country: US (occurrence: US)
  Receive Date: 20170924
  Receipt Date: 20170924
  Transmission Date: 20171128
  Serious: Yes (Other)
  Sender: FDA-Public Use
  Company Number: None

PATIENT
  Age: 57 Year
  Sex: Male

DRUGS (8)
  1. METFORMIN HCL [Concomitant]
     Active Substance: METFORMIN HYDROCHLORIDE
  2. MELOXICAM. [Concomitant]
     Active Substance: MELOXICAM
  3. OMEGA-3-ACID ETHYL ESTERS. [Concomitant]
     Active Substance: OMEGA-3-ACID ETHYL ESTERS
  4. ALLOPURINOL. [Concomitant]
     Active Substance: ALLOPURINOL
  5. LISINOPRIL. [Suspect]
     Active Substance: LISINOPRIL
     Indication: HYPERTENSION
     Route: 048
     Dates: start: 20170901, end: 20170924
  6. OMEPRAZOLE. [Concomitant]
     Active Substance: OMEPRAZOLE
  7. ROSUVASTATIN CALCIUM. [Concomitant]
     Active Substance: ROSUVASTATIN CALCIUM
  8. TESTOSTERONE-GEL-PUM [Concomitant]

REACTIONS (1)
  - Blood pressure increased [None]

NARRATIVE: CASE EVENT DATE: 20170830
